FAERS Safety Report 6249774-8 (Version None)
Quarter: 2009Q2

REPORT INFORMATION
  Report Type: 
  Country: None (occurrence: None)
  Receive Date: 20090629
  Receipt Date: 20090617
  Transmission Date: 20091009
  Serious: Yes (Hospitalization)
  Sender: FDA-Public Use
  Company Number: GB-TEVA-198992ISR

PATIENT
  Age: 49 Year
  Sex: Female
  Weight: 89 kg

DRUGS (3)
  1. PAROXETINE HCL [Suspect]
     Indication: DEPRESSION
  2. METHYLTHIONINIUM CHLORIDE [Suspect]
  3. ONDANSETRON [Suspect]

REACTIONS (17)
  - AGITATION [None]
  - ALKALOSIS [None]
  - BLOOD PRESSURE SYSTOLIC INCREASED [None]
  - CONFUSIONAL STATE [None]
  - DEPRESSED LEVEL OF CONSCIOUSNESS [None]
  - DISORIENTATION [None]
  - DRUG INTERACTION [None]
  - DRUG TOXICITY [None]
  - DYSKINESIA [None]
  - GAZE PALSY [None]
  - HEART RATE INCREASED [None]
  - ILL-DEFINED DISORDER [None]
  - MENTAL STATUS CHANGES POSTOPERATIVE [None]
  - MYDRIASIS [None]
  - OCULOGYRIC CRISIS [None]
  - PCO2 INCREASED [None]
  - PYREXIA [None]
